FAERS Safety Report 16681390 (Version 1)
Quarter: 2019Q3

REPORT INFORMATION
  Report Type: Spontaneous
  Country: MY (occurrence: MY)
  Receive Date: 20190808
  Receipt Date: 20190808
  Transmission Date: 20191004
  Serious: Yes (Death)
  Sender: FDA-Public Use
  Company Number: MY-B.I. PHARMACEUTICALS,INC./RIDGEFIELD-2019-BI-032545

PATIENT
  Age: 60 Year
  Sex: Female

DRUGS (1)
  1. PRADAXA [Suspect]
     Active Substance: DABIGATRAN ETEXILATE MESYLATE
     Indication: ATRIAL FIBRILLATION
     Route: 065

REACTIONS (7)
  - Lower gastrointestinal haemorrhage [Fatal]
  - Upper gastrointestinal haemorrhage [Fatal]
  - International normalised ratio increased [Unknown]
  - Acidosis [Fatal]
  - Infection [Fatal]
  - Renal disorder [Unknown]
  - Multiple organ dysfunction syndrome [Fatal]
